FAERS Safety Report 4459380-3 (Version None)
Quarter: 2004Q3

REPORT INFORMATION
  Report Type: 
  Country: None (occurrence: None)
  Receive Date: 20040927
  Receipt Date: 20040921
  Transmission Date: 20050211
  Serious: Yes (Hospitalization)
  Sender: FDA-Public Use
  Company Number: FI-ROCHE-381202

PATIENT
  Age: 36 Year
  Sex: Male

DRUGS (18)
  1. CELLCEPT [Suspect]
     Route: 048
     Dates: start: 20040827, end: 20040913
  2. SANDIMMUNE [Concomitant]
     Indication: TRANSPLANT REJECTION
  3. PREDNISOLONE [Concomitant]
     Indication: TRANSPLANT REJECTION
     Route: 048
     Dates: start: 20040827
  4. SUSTANON [Concomitant]
     Indication: OSTEOPOROSIS
     Route: 042
     Dates: start: 20040830, end: 20040830
  5. PENTACARINAT [Concomitant]
     Dates: end: 20040903
  6. LACTOPHILUS [Concomitant]
     Indication: ILL-DEFINED DISORDER
     Dates: start: 20040827
  7. APURIN [Concomitant]
     Dates: start: 20040830
  8. PLENDIL [Concomitant]
     Dates: start: 20040827
  9. DILTIAZEM HCL [Concomitant]
     Dates: end: 20040827
  10. PEPCIDIN [Concomitant]
  11. PRAVACHOL [Concomitant]
  12. FOSAMAX [Concomitant]
     Dosage: EVERY SUNDAY
  13. FLIXOTIDE [Concomitant]
  14. MEDROL [Concomitant]
     Dates: end: 20040827
  15. MULTI-VITAMIN [Concomitant]
     Dates: end: 20040826
  16. CALCIUM CARBONATE [Concomitant]
     Dates: start: 20040827
  17. BENZYLPENICILLIN SODIUM [Concomitant]
     Route: 042
     Dates: start: 20040826, end: 20040907
  18. BENZATHINE BENZYLPENICILLIN [Concomitant]
     Dates: start: 20040907, end: 20040907

REACTIONS (5)
  - BALANCE DISORDER [None]
  - FEELING ABNORMAL [None]
  - HEADACHE [None]
  - NAUSEA [None]
  - TUNNEL VISION [None]
